FAERS Safety Report 16439181 (Version 1)
Quarter: 2019Q2

REPORT INFORMATION
  Report Type: Spontaneous
  Country: JP (occurrence: JP)
  Receive Date: 20190617
  Receipt Date: 20190617
  Transmission Date: 20190711
  Serious: Yes (Other)
  Sender: FDA-Public Use
  Company Number: JP-ROCHE-2337203

PATIENT
  Sex: Female

DRUGS (1)
  1. BONVIVA [Suspect]
     Active Substance: IBANDRONATE SODIUM
     Indication: PRODUCT USED FOR UNKNOWN INDICATION
     Route: 042

REACTIONS (9)
  - Myalgia [Unknown]
  - Chest discomfort [Unknown]
  - Hypoaesthesia [Unknown]
  - Bone pain [Unknown]
  - Seizure [Unknown]
  - Arthralgia [Unknown]
  - Gait disturbance [Unknown]
  - Taste disorder [Unknown]
  - Dizziness [Unknown]
